FAERS Safety Report 9156845 (Version 1)
Quarter: 2013Q1

REPORT INFORMATION
  Report Type: Spontaneous
  Country: US (occurrence: US)
  Receive Date: 20130312
  Receipt Date: 20130312
  Transmission Date: 20140127
  Serious: Yes (Hospitalization)
  Sender: FDA-Public Use
  Company Number: US-BAYER-2013-028319

PATIENT
  Age: 48 Year
  Sex: Female
  Weight: 64.99 kg

DRUGS (3)
  1. YAZ [Suspect]
  2. YASMIN [Suspect]
  3. OCELLA [Suspect]

REACTIONS (4)
  - Pulmonary embolism [None]
  - Deep vein thrombosis [Recovered/Resolved]
  - Phlebitis superficial [None]
  - Pelvic venous thrombosis [Recovered/Resolved]
